FAERS Safety Report 10166584 (Version 1)
Quarter: 2014Q2

REPORT INFORMATION
  Report Type: Spontaneous
  Country: US (occurrence: US)
  Receive Date: 20140512
  Receipt Date: 20140512
  Transmission Date: 20141212
  Serious: No
  Sender: FDA-Public Use
  Company Number: US-JNJFOC-20140415581

PATIENT
  Sex: Male

DRUGS (3)
  1. INVEGA SUSTENNA [Suspect]
     Indication: PRODUCT USED FOR UNKNOWN INDICATION
     Route: 030
  2. DEPAKOTE ER [Concomitant]
     Dosage: 1 TABLET IN THE MORNING AND 2 IN AFTERNOON
  3. SEROQUEL [Concomitant]
     Dosage: IN THE EVENING

REACTIONS (2)
  - Blood prolactin increased [Unknown]
  - Breast enlargement [Unknown]
